FAERS Safety Report 6919125-1 (Version None)
Quarter: 2010Q3

REPORT INFORMATION
  Report Type: 
  Country: None (occurrence: None)
  Receive Date: 20100811
  Receipt Date: 20100804
  Transmission Date: 20110219
  Serious: Yes (Hospitalization)
  Sender: FDA-Public Use
  Company Number: US-ROCHE-642203

PATIENT
  Sex: Female
  Weight: 84 kg

DRUGS (14)
  1. PEGINTERFERON ALFA-2A [Suspect]
     Dosage: DRUG WAS TEMPORARILY INTERRUPTED.
     Route: 058
     Dates: start: 20090420, end: 20090504
  2. PEGINTERFERON ALFA-2A [Suspect]
     Dosage: DRUG WAS PERMANENTLY DISCONTINUED
     Route: 058
     Dates: start: 20090606, end: 20090627
  3. RIBAVIRIN [Suspect]
     Dosage: DRUG WAS TEMPORARILY INTERRUPTED.
     Route: 048
     Dates: start: 20090420, end: 20090504
  4. RIBAVIRIN [Suspect]
     Dosage: DRUG WAS PERMANENTLY DISCONTINUED
     Route: 048
     Dates: start: 20090606, end: 20090702
  5. CITALOPRAM [Concomitant]
  6. TRIAMTERENE [Concomitant]
     Dosage: DRUG REPORTED AS TRIMETERENE/HYDROCHLOROTHIAZIDE.
     Dates: end: 20090606
  7. QUINAPRIL [Concomitant]
     Dates: end: 20090606
  8. QUINAPRIL [Concomitant]
     Dates: start: 20090626
  9. QUINAPRIL [Concomitant]
     Dates: start: 20090707
  10. BENADRYL [Concomitant]
     Dosage: TDD: 2 TBS.
  11. LORATADINE [Concomitant]
  12. FLUTICASONE PROPIONATE [Concomitant]
     Dosage: TDD: PUFF
     Dates: start: 20090707
  13. PROCRIT [Concomitant]
     Dosage: TDD- 40000
     Dates: start: 20090515
  14. HYDROCHLOROTHIAZIDE [Concomitant]
     Dates: start: 20090626

REACTIONS (3)
  - DEHYDRATION [None]
  - HYPOKALAEMIA [None]
  - RENAL FAILURE ACUTE [None]
